FAERS Safety Report 6476060-3 (Version None)
Quarter: 2009Q4

REPORT INFORMATION
  Report Type: 
  Country: None (occurrence: None)
  Receive Date: 20091204
  Receipt Date: 20091120
  Transmission Date: 20100525
  Serious: Yes (Hospitalization)
  Sender: FDA-Public Use
  Company Number: ZA-GENENTECH-294873

PATIENT
  Age: 49 Year
  Sex: Female

DRUGS (2)
  1. HERCEPTIN [Suspect]
     Indication: BREAST CANCER
     Dosage: 159.2 MG, UNK
     Route: 042
     Dates: start: 20090716, end: 20091007
  2. PACLITAXEL [Concomitant]
     Indication: BREAST CANCER
     Dosage: UNK
     Dates: start: 20090716, end: 20091007

REACTIONS (1)
  - PERICARDIAL EFFUSION [None]
